FAERS Safety Report 14845081 (Version 2)
Quarter: 2018Q2

REPORT INFORMATION
  Report Type: Spontaneous
  Country: JP (occurrence: JP)
  Receive Date: 20180504
  Receipt Date: 20180614
  Transmission Date: 20180711
  Serious: Yes (Other)
  Sender: FDA-Public Use
  Company Number: JP-AMGEN-JPNSP2018045001

PATIENT
  Sex: Female

DRUGS (1)
  1. PARSABIV [Suspect]
     Active Substance: ETELCALCETIDE HYDROCHLORIDE
     Indication: HYPERPARATHYROIDISM SECONDARY
     Dosage: 5 MG, 2 TIMES/WK (ON TUESDAYS AND SATURDAY)
     Route: 042
     Dates: start: 20171223, end: 20180306

REACTIONS (2)
  - Seizure [Recovered/Resolved]
  - Hypocalcaemia [Unknown]
